FAERS Safety Report 9582104 (Version 1)
Quarter: 2013Q4

REPORT INFORMATION
  Report Type: Spontaneous
  Country: US (occurrence: US)
  Receive Date: 20131002
  Receipt Date: 20131002
  Transmission Date: 20140711
  Serious: No
  Sender: FDA-Public Use
  Company Number: US-AMGEN-USASP2013043721

PATIENT
  Age: 54 Year
  Sex: Female
  Weight: 57.14 kg

DRUGS (8)
  1. ENBREL [Suspect]
     Indication: RHEUMATOID ARTHRITIS
     Dosage: UNK
     Route: 065
     Dates: start: 201003, end: 201304
  2. CALCIUM [Concomitant]
     Dosage: UNK
  3. METHOTREXATE [Concomitant]
     Dosage: UNK
  4. MTV [Concomitant]
     Dosage: UNK
  5. PAXIL                              /00830802/ [Concomitant]
     Dosage: UNK
  6. VITAMIN D                          /00107901/ [Concomitant]
     Dosage: UNK
  7. VITAMIN E                          /00110501/ [Concomitant]
     Dosage: UNK
  8. XANAX [Concomitant]
     Dosage: UNK

REACTIONS (2)
  - Erythema [Unknown]
  - Contusion [Unknown]
